FAERS Safety Report 5895517-7 (Version None)
Quarter: 2008Q3

REPORT INFORMATION
  Report Type: 
  Country: None (occurrence: None)
  Receive Date: 20080924
  Receipt Date: 20080918
  Transmission Date: 20090109
  Serious: Yes (Hospitalization, Other)
  Sender: FDA-Public Use
  Company Number: US-MERCK-0804USA01815

PATIENT
  Age: 76 Year
  Sex: Male
  Weight: 67 kg

DRUGS (4)
  1. FOSAMAX [Suspect]
     Indication: OSTEOPOROSIS
     Route: 048
     Dates: start: 20051201, end: 20070101
  2. FOSAMAX [Suspect]
     Route: 048
     Dates: start: 20020101
  3. [THERAPY UNSPECIFIED] [Concomitant]
     Indication: HYPERTENSION
     Route: 065
     Dates: start: 19980101
  4. [THERAPY UNSPECIFIED] [Concomitant]
     Indication: BLOOD CHOLESTEROL INCREASED
     Route: 065
     Dates: start: 19980101

REACTIONS (26)
  - ABSCESS [None]
  - ACTIVITIES OF DAILY LIVING IMPAIRED [None]
  - ANEURYSM [None]
  - ARTERIOSCLEROSIS OBLITERANS [None]
  - BACK PAIN [None]
  - BLOOD URINE [None]
  - BONE DISORDER [None]
  - CELLULITIS [None]
  - DEAFNESS [None]
  - DENTAL CARIES [None]
  - ECCHYMOSIS [None]
  - EXOSTOSIS [None]
  - FALL [None]
  - FRACTURE [None]
  - IMPAIRED HEALING [None]
  - LOSS OF CONSCIOUSNESS [None]
  - NECROSIS [None]
  - NOCTURIA [None]
  - OSTEOARTHRITIS [None]
  - OSTEOMYELITIS ACUTE [None]
  - OSTEONECROSIS [None]
  - PNEUMONIA [None]
  - PROSTATIC DISORDER [None]
  - RESIDUAL URINE [None]
  - SPINAL COMPRESSION FRACTURE [None]
  - TOOTH DISORDER [None]
